FAERS Safety Report 6804757-1 (Version None)
Quarter: 2010Q2

REPORT INFORMATION
  Report Type: 
  Country: None (occurrence: None)
  Receive Date: 20100628
  Receipt Date: 20070430
  Transmission Date: 20101027
  Serious: No
  Sender: FDA-Public Use
  Company Number: US-PFIZER INC-2007035051

PATIENT
  Sex: Male
  Weight: 96.62 kg

DRUGS (2)
  1. GENOTROPIN [Suspect]
     Indication: GROWTH HORMONE DEFICIENCY
     Dates: start: 20010101
  2. INSULIN [Concomitant]

REACTIONS (2)
  - HYPERHIDROSIS [None]
  - INSOMNIA [None]
